FAERS Safety Report 9030307 (Version 1)
Quarter: 2013Q1

REPORT INFORMATION
  Report Type: Spontaneous
  Country: NL (occurrence: NL)
  Receive Date: 20130122
  Receipt Date: 20130122
  Transmission Date: 20140127
  Serious: Yes (Other)
  Sender: FDA-Public Use
  Company Number: NL-PFIZER INC-2013014810

PATIENT
  Age: 67 Year
  Sex: Female

DRUGS (4)
  1. AMIODARONE HCL [Suspect]
     Indication: HYPERTENSION
     Dosage: 200 MG/DAY
     Route: 048
     Dates: start: 201107, end: 201212
  2. ACENOCOUMAROL [Suspect]
     Indication: ATRIAL FIBRILLATION
     Dosage: UNK
     Route: 048
  3. INDAPAMIDE/PERINDOPRIL ERBUMINE [Concomitant]
     Dosage: UNK
     Dates: start: 201012
  4. SIMVASTATIN [Concomitant]
     Dosage: UNK
     Dates: start: 201012

REACTIONS (4)
  - Photosensitivity reaction [Not Recovered/Not Resolved]
  - Dermatitis [Not Recovered/Not Resolved]
  - Burns second degree [Not Recovered/Not Resolved]
  - Pruritus [Not Recovered/Not Resolved]
